FAERS Safety Report 5338092-8 (Version None)
Quarter: 2007Q2

REPORT INFORMATION
  Report Type: 
  Country: None (occurrence: None)
  Receive Date: 20070327
  Receipt Date: 20061211
  Transmission Date: 20071010
  Serious: No
  Sender: FDA-Public Use
  Company Number: 233715

PATIENT
  Age: 86 Year
  Sex: Female
  Weight: 81.6 kg

DRUGS (6)
  1. LUCENTIS [Suspect]
     Indication: MACULAR DEGENERATION
     Dosage: 0.5 MBQ, INTRAOCULAR
     Route: 031
     Dates: start: 20060901
  2. AVASTIN [Suspect]
     Indication: DRUG USE FOR UNKNOWN INDICATION
     Dosage: INTRAOCULAR
     Route: 031
  3. BLOOD PRESSURE MEDICATION NOS [Concomitant]
  4. ANTIDIABETIC DRUG NOS [Concomitant]
  5. BETADINE [Concomitant]
  6. VIGAMOX [Concomitant]

REACTIONS (2)
  - EYE PAIN [None]
  - NAUSEA [None]
